FAERS Safety Report 14790113 (Version 1)
Quarter: 2018Q2

REPORT INFORMATION
  Report Type: Spontaneous
  Country: ES (occurrence: ES)
  Receive Date: 20180423
  Receipt Date: 20180423
  Transmission Date: 20180711
  Serious: Yes (Hospitalization, Other)
  Sender: FDA-Public Use
  Company Number: ES-BAUSCH-BL-2018-010745

PATIENT
  Age: 72 Year
  Sex: Female
  Weight: 78 kg

DRUGS (6)
  1. ERYTHROPOIETIN [Suspect]
     Active Substance: ERYTHROPOIETIN
     Indication: PLASMA CELL MYELOMA
     Dosage: 40 (UNIT NOT REPORTED) AND 1 (UNIT NOT REPORTED)
     Route: 065
     Dates: start: 20170418, end: 20171011
  2. REVLIMID [Suspect]
     Active Substance: LENALIDOMIDE
     Indication: PLASMA CELL MYELOMA
     Dosage: (21 CAPSULES/28DAYS)
     Route: 065
     Dates: start: 20161213, end: 20170917
  3. KYPROLIS [Suspect]
     Active Substance: CARFILZOMIB
     Dosage: ON DAYS 1 AND 2
     Route: 042
     Dates: start: 20161213
  4. GLUCOSE [Concomitant]
     Active Substance: DEXTROSE
     Indication: PRODUCT USED FOR UNKNOWN INDICATION
     Dosage: 50 CC
     Route: 042
  5. DEXAMETHASONE. [Suspect]
     Active Substance: DEXAMETHASONE
     Indication: PLASMA CELL MYELOMA
     Route: 065
     Dates: start: 20161213, end: 20170918
  6. KYPROLIS [Suspect]
     Active Substance: CARFILZOMIB
     Indication: PLASMA CELL MYELOMA
     Dosage: ON REST OF DAYS OTHER THAN 1 AND 2
     Route: 042
     Dates: end: 20170912

REACTIONS (2)
  - Cerebrovascular accident [Not Recovered/Not Resolved]
  - Mitral valve disease [Not Recovered/Not Resolved]

NARRATIVE: CASE EVENT DATE: 20170922
